FAERS Safety Report 24620453 (Version 1)
Quarter: 2024Q4

REPORT INFORMATION
  Report Type: Spontaneous
  Country: CA (occurrence: CA)
  Receive Date: 20241114
  Receipt Date: 20241114
  Transmission Date: 20250115
  Serious: Yes (Hospitalization, Other)
  Sender: JOHNSON AND JOHNSON
  Company Number: CA-JNJFOC-20241129680

PATIENT
  Age: 69 Year
  Sex: Male

DRUGS (2)
  1. ERLEADA [Suspect]
     Active Substance: APALUTAMIDE
     Indication: Product used for unknown indication
     Route: 048
  2. ELIGARD [Suspect]
     Active Substance: LEUPROLIDE ACETATE
     Indication: Prostate cancer
     Route: 058

REACTIONS (13)
  - Asthenia [Unknown]
  - Chest discomfort [Unknown]
  - Erythema [Unknown]
  - Fatigue [Unknown]
  - Headache [Unknown]
  - Hot flush [Unknown]
  - Hypertension [Unknown]
  - Injection site mass [Unknown]
  - Injection site pain [Unknown]
  - Loss of consciousness [Unknown]
  - Pulse absent [Unknown]
  - Tachycardia [Unknown]
  - Thyroid disorder [Unknown]
